FAERS Safety Report 15845744 (Version 3)
Quarter: 2020Q4

REPORT INFORMATION
  Report Type: Report from Study
  Country: FR (occurrence: FR)
  Receive Date: 20190120
  Receipt Date: 20201023
  Transmission Date: 20210113
  Serious: Yes (Other)
  Sender: FDA-Public Use
  Company Number: FR-AUROBINDO-AUR-APL-2019-001046

PATIENT
  Age: 27 Year
  Sex: Female

DRUGS (1)
  1. AMOXICILLIN+CLAVULANIC ACID [Suspect]
     Active Substance: AMOXICILLIN\CLAVULANIC ACID
     Indication: POSTPARTUM HAEMORRHAGE
     Dosage: UNK
     Route: 065

REACTIONS (7)
  - Pyrexia [Unknown]
  - Maternal exposure during pregnancy [Unknown]
  - Live birth [Unknown]
  - Clostridium difficile infection [Unknown]
  - Systemic inflammatory response syndrome [Unknown]
  - Megacolon [Unknown]
  - Diarrhoea [Unknown]
